FAERS Safety Report 4500720-4 (Version None)
Quarter: 2004Q4

REPORT INFORMATION
  Report Type: 
  Country: None (occurrence: None)
  Receive Date: 20041112
  Receipt Date: 20041112
  Transmission Date: 20050328
  Serious: Yes (Life-Threatening)
  Sender: FDA-Public Use
  Company Number: None

PATIENT
  Age: 87 Year
  Sex: Female
  Weight: 92 kg

DRUGS (2)
  1. ROCEPHIN [Suspect]
     Indication: URINARY TRACT INFECTION
     Dosage: IV 1000 MG DAILY
     Route: 042
     Dates: start: 20041109
  2. ROCEPHIN [Suspect]
     Indication: URINARY TRACT INFECTION
     Dosage: IV 1000 MG DAILY
     Route: 042
     Dates: start: 20041110

REACTIONS (2)
  - HEPATIC FAILURE [None]
  - JAUNDICE [None]
